FAERS Safety Report 23697610 (Version 1)
Quarter: 2024Q2

REPORT INFORMATION
  Report Type: Spontaneous
  Country: US (occurrence: None)
  Receive Date: 20240401
  Receipt Date: 20240401
  Transmission Date: 20240716
  Serious: Yes (Other)
  Sender: FDA-Public Use
  Company Number: None

PATIENT
  Age: 62 Year
  Sex: Female
  Weight: 64.41 kg

DRUGS (1)
  1. OXCARBAZEPINE [Suspect]
     Active Substance: OXCARBAZEPINE
     Dosage: 1800MG QD ORAL
     Route: 048
     Dates: start: 202401, end: 202403

REACTIONS (2)
  - Dizziness [None]
  - Migraine [None]

NARRATIVE: CASE EVENT DATE: 20240116
